FAERS Safety Report 24922349 (Version 5)
Quarter: 2025Q3

REPORT INFORMATION
  Report Type: Spontaneous
  Country: EU (occurrence: EU)
  Receive Date: 20250204
  Receipt Date: 20250804
  Transmission Date: 20251020
  Serious: No
  Sender: PFIZER
  Company Number: EU-PFIZER INC-202500019170

PATIENT
  Age: 8 Year
  Sex: Female
  Weight: 22 kg

DRUGS (1)
  1. GENOTROPIN [Suspect]
     Active Substance: SOMATROPIN
     Indication: Hypopituitarism
     Dosage: 3.5 MG, WEEKLY (TOTAL DOSE RECEIVED PER WEEK IS 3.5MG)
     Route: 058
     Dates: start: 202405

REACTIONS (3)
  - Wrong technique in device usage process [Unknown]
  - Poor quality device used [Unknown]
  - Device material issue [Unknown]

NARRATIVE: CASE EVENT DATE: 20250126
